FAERS Safety Report 5522213-8 (Version None)
Quarter: 2007Q4

REPORT INFORMATION
  Report Type: 
  Country: None (occurrence: None)
  Receive Date: 20071120
  Receipt Date: 20071115
  Transmission Date: 20080405
  Serious: Yes (Other)
  Sender: FDA-Public Use
  Company Number: D0054854A

PATIENT
  Age: 43 Year
  Sex: Male
  Weight: 64 kg

DRUGS (4)
  1. SEROXAT [Suspect]
     Indication: DEPRESSION
     Dosage: 30MG PER DAY
     Route: 048
     Dates: start: 20060801
  2. THYRONAJOD [Concomitant]
     Route: 048
  3. ECURAL [Concomitant]
     Indication: NEURODERMATITIS
     Route: 061
  4. PROTOPIC [Concomitant]
     Indication: NEURODERMATITIS
     Route: 061

REACTIONS (1)
  - BILIRUBINURIA [None]
